FAERS Safety Report 8887806 (Version 2)
Quarter: 2012Q4

REPORT INFORMATION
  Report Type: 
  Country: DE (occurrence: DE)
  Receive Date: 20121106
  Receipt Date: 20121119
  Transmission Date: 20130627
  Serious: Yes (Other)
  Sender: FDA-Public Use
  Company Number: DE-BAYER-2012-115377

PATIENT
  Age: 22 Year
  Sex: Male
  Weight: 54.88 kg

DRUGS (1)
  1. AVALOX [Suspect]
     Indication: PURULENT BRONCHITIS
     Dosage: 400 mg, UNK
     Dates: start: 20121009, end: 20121015

REACTIONS (11)
  - Paraesthesia [Recovered/Resolved]
  - Herpes zoster [Recovered/Resolved]
  - Cyanosis [None]
  - Muscular weakness [Recovering/Resolving]
  - Myalgia [None]
  - Tendon pain [None]
  - Arthralgia [None]
  - Cardiovascular disorder [None]
  - Dizziness [None]
  - Abdominal discomfort [None]
  - Myositis [Recovering/Resolving]
